FAERS Safety Report 17443778 (Version 2)
Quarter: 2020Q2

REPORT INFORMATION
  Report Type: Spontaneous
  Country: JP (occurrence: JP)
  Receive Date: 20200221
  Receipt Date: 20200514
  Transmission Date: 20200713
  Serious: Yes (Hospitalization)
  Sender: FDA-Public Use
  Company Number: JP-ROCHE-2552658

PATIENT
  Age: 49 Year
  Sex: Female
  Weight: 53 kg

DRUGS (24)
  1. TOFACITINIB CITRATE [Suspect]
     Active Substance: TOFACITINIB CITRATE
     Indication: RHEUMATOID ARTHRITIS
     Route: 048
     Dates: start: 20160809, end: 20161226
  2. BREDININ [Suspect]
     Active Substance: MIZORIBINE
     Indication: PRODUCT USED FOR UNKNOWN INDICATION
     Dosage: DOSAGE IS UNCERTAIN.
     Route: 065
     Dates: end: 20160525
  3. LEFLUNOMIDE. [Concomitant]
     Active Substance: LEFLUNOMIDE
     Dosage: DOSAGE IS UNCERTAIN.
     Route: 065
  4. CIMZIA [Suspect]
     Active Substance: CERTOLIZUMAB PEGOL
     Indication: PRODUCT USED FOR UNKNOWN INDICATION
     Dosage: DOSAGE IS UNCERTAIN.
     Route: 065
     Dates: start: 20150305, end: 20160714
  5. CIMZIA [Suspect]
     Active Substance: CERTOLIZUMAB PEGOL
     Dosage: DOSAGE IS UNCERTAIN.
     Route: 065
     Dates: end: 20170829
  6. ENBREL [Suspect]
     Active Substance: ETANERCEPT
     Indication: PRODUCT USED FOR UNKNOWN INDICATION
     Dosage: DOSAGE IS UNCERTAIN.
     Route: 065
     Dates: start: 201208, end: 201212
  7. CALONAL [Concomitant]
     Active Substance: ACETAMINOPHEN
     Dosage: DOSAGE IS UNCERTAIN.
     Route: 048
  8. DICLOFENAC [Concomitant]
     Active Substance: DICLOFENAC
     Route: 065
  9. GASLON [Concomitant]
     Active Substance: IRSOGLADINE MALEATE
     Dosage: DOSAGE IS UNCERTAIN.
     Route: 048
  10. SALAZOSULFAPYRIDINE [Concomitant]
     Active Substance: SULFASALAZINE
     Dosage: DOSAGE IS UNCERTAIN.
     Route: 065
  11. BUCILLAMINE [Concomitant]
     Active Substance: BUCILLAMINE
     Dosage: DOSAGE IS UNCERTAIN.
     Route: 065
  12. IGURATIMOD [Concomitant]
     Active Substance: IGURATIMOD
     Dosage: DOSAGE IS UNCERTAIN.
     Route: 065
  13. RHEUMATREX [Suspect]
     Active Substance: METHOTREXATE SODIUM
     Indication: PRODUCT USED FOR UNKNOWN INDICATION
     Route: 048
     Dates: start: 20151217, end: 20170829
  14. CIMZIA [Suspect]
     Active Substance: CERTOLIZUMAB PEGOL
     Dosage: DOSAGE IS UNCERTAIN.
     Route: 065
     Dates: start: 20161228
  15. PREDNISOLONE. [Concomitant]
     Active Substance: PREDNISOLONE
     Indication: RHEUMATOID ARTHRITIS
     Dosage: DOSE INTERVAL UNCERTAINTY
     Route: 065
     Dates: end: 20190104
  16. ESOMEPRAZOLE. [Concomitant]
     Active Substance: ESOMEPRAZOLE MAGNESIUM
     Dosage: DOSAGE IS UNCERTAIN.
     Route: 048
  17. GOLIMUMAB [Suspect]
     Active Substance: GOLIMUMAB
     Indication: PRODUCT USED FOR UNKNOWN INDICATION
     Dosage: DOSAGE IS UNCERTAIN.
     Route: 065
     Dates: start: 201508, end: 201510
  18. ABATACEPT [Suspect]
     Active Substance: ABATACEPT
     Indication: PRODUCT USED FOR UNKNOWN INDICATION
     Dosage: DOSAGE IS UNCERTAIN.
     Route: 065
     Dates: start: 201212, end: 201303
  19. LOXONIN [Concomitant]
     Active Substance: LOXOPROFEN SODIUM
     Dosage: DOSAGE IS UNCERTAIN.
     Route: 065
  20. MERCAZOLE [THIAMAZOLE] [Concomitant]
     Active Substance: METHIMAZOLE
     Dosage: DOSAGE IS UNCERTAIN.
     Route: 065
  21. ACTEMRA [Suspect]
     Active Substance: TOCILIZUMAB
     Indication: RHEUMATOID ARTHRITIS
     Dosage: DOSAGE IS UNCERTAIN.
     Route: 065
     Dates: start: 201303, end: 201501
  22. TACROLIMUS MONOHYDRATE [Concomitant]
     Active Substance: TACROLIMUS
     Dosage: DOSAGE IS UNCERTAIN.
     Route: 065
  23. FOLIAMIN [Concomitant]
     Active Substance: FOLIC ACID
     Dosage: DOSAGE IS UNCERTAIN.
     Route: 065
  24. CRESTOR [Concomitant]
     Active Substance: ROSUVASTATIN CALCIUM
     Dosage: DOSAGE IS UNCERTAIN.
     Route: 065

REACTIONS (1)
  - Ovarian cancer [Not Recovered/Not Resolved]

NARRATIVE: CASE EVENT DATE: 201707
